FAERS Safety Report 6023532-1 (Version None)
Quarter: 2008Q4

REPORT INFORMATION
  Report Type: 
  Country: None (occurrence: None)
  Receive Date: 20081230
  Receipt Date: 20081217
  Transmission Date: 20090506
  Serious: Yes (Other)
  Sender: FDA-Public Use
  Company Number: PHHY2008MX32918

PATIENT
  Age: 46 Year
  Sex: Female

DRUGS (2)
  1. ACLASTA [Suspect]
     Indication: OSTEOPOROSIS
     Dosage: 5 MG, ONCE/SINGLE
     Dates: start: 20070901, end: 20070901
  2. ARAVA [Concomitant]
     Dosage: 1 DF PER DAY
     Route: 048
     Dates: start: 20070901

REACTIONS (1)
  - BRONCHITIS [None]
